FAERS Safety Report 9783846 (Version 3)
Quarter: 2014Q1

REPORT INFORMATION
  Report Type: Spontaneous
  Country: US (occurrence: US)
  Receive Date: 20131226
  Receipt Date: 20140207
  Transmission Date: 20141002
  Serious: Yes (Death, Life-Threatening, Hospitalization, Other)
  Sender: FDA-Public Use
  Company Number: US-PFIZER INC-2013365454

PATIENT
  Age: 57 Year
  Sex: Male
  Weight: 102 kg

DRUGS (9)
  1. TORISEL [Suspect]
     Indication: METASTATIC RENAL CELL CARCINOMA
     Dosage: INFUSION FOR 1 HOUR
     Route: 041
     Dates: start: 201310, end: 201312
  2. TORISEL [Suspect]
     Dosage: 25 MG, DAILY
     Route: 042
     Dates: start: 20131216, end: 20131216
  3. LOSARTAN [Concomitant]
     Dosage: UNK
  4. VERAPAMIL [Concomitant]
     Dosage: UNK
  5. METOPROLOL [Concomitant]
     Dosage: UNK
  6. NORCO [Concomitant]
     Dosage: UNK
  7. PROTONIX [Concomitant]
     Dosage: UNK
  8. LOPRESSOR [Concomitant]
     Dosage: UNK
  9. MAALOX [Concomitant]
     Dosage: UNK

REACTIONS (10)
  - Disease progression [Fatal]
  - Metastatic renal cell carcinoma [Fatal]
  - Rhabdomyolysis [Recovered/Resolved]
  - Renal failure acute [Recovering/Resolving]
  - Pain [Not Recovered/Not Resolved]
  - Protein urine present [Not Recovered/Not Resolved]
  - Liver function test abnormal [Recovering/Resolving]
  - Blood creatinine increased [Not Recovered/Not Resolved]
  - Alanine aminotransferase increased [Recovering/Resolving]
  - Blood alkaline phosphatase increased [Recovering/Resolving]
